FAERS Safety Report 12908403 (Version 2)
Quarter: 2016Q4

REPORT INFORMATION
  Report Type: Report from Study
  Country: US (occurrence: US)
  Receive Date: 20161103
  Receipt Date: 20161111
  Transmission Date: 20170207
  Serious: Yes (Life-Threatening)
  Sender: FDA-Public Use
  Company Number: PHEH2016US028601

PATIENT
  Sex: Male

DRUGS (1)
  1. SANDOSTATIN LAR DEPOT [Suspect]
     Active Substance: OCTREOTIDE ACETATE
     Indication: PRODUCT USED FOR UNKNOWN INDICATION
     Dosage: 30 MG, QMO
     Route: 030
     Dates: start: 20150123

REACTIONS (5)
  - Abdominal pain upper [Unknown]
  - Malaise [Unknown]
  - Apparent death [Unknown]
  - Dehydration [Unknown]
  - Diarrhoea [Unknown]
